FAERS Safety Report 5064594-8 (Version None)
Quarter: 2006Q3

REPORT INFORMATION
  Report Type: 
  Country: None (occurrence: None)
  Receive Date: 20060728
  Receipt Date: 20060718
  Transmission Date: 20061208
  Serious: Yes (Other)
  Sender: FDA-Public Use
  Company Number: US-MERCK-0607USA04071

PATIENT
  Age: 59 Year
  Sex: Female
  Weight: 81 kg

DRUGS (11)
  1. SINGULAIR [Suspect]
     Indication: RHINITIS ALLERGIC
     Route: 048
     Dates: start: 20030701
  2. CORTICOSTEROIDS (UNSPECIFIED) [Concomitant]
     Route: 055
  3. ZYRTEC [Concomitant]
     Indication: RHINITIS ALLERGIC
     Route: 065
  4. ENALAPRIL MALEATE [Concomitant]
     Indication: HYPERTENSION
     Route: 065
  5. SYNTHROID [Concomitant]
     Indication: HYPOTHYROIDISM
     Route: 065
  6. TRICOR [Concomitant]
     Indication: HYPERLIPIDAEMIA
     Route: 065
  7. NASONEX [Concomitant]
     Indication: RHINITIS ALLERGIC
     Route: 065
  8. NEXIUM [Concomitant]
     Indication: GASTROOESOPHAGEAL REFLUX DISEASE
     Route: 065
  9. SPIRIVA [Concomitant]
     Indication: CHRONIC OBSTRUCTIVE PULMONARY DISEASE
     Route: 065
  10. QVAR 40 [Concomitant]
     Indication: CHRONIC OBSTRUCTIVE PULMONARY DISEASE
     Route: 065
  11. COMBIVENT [Concomitant]
     Indication: CHRONIC OBSTRUCTIVE PULMONARY DISEASE
     Route: 065

REACTIONS (3)
  - ALLERGIC GRANULOMATOUS ANGIITIS [None]
  - ERYTHEMA NODOSUM [None]
  - VASCULITIS [None]
